FAERS Safety Report 9123210 (Version 1)
Quarter: 2013Q1

REPORT INFORMATION
  Report Type: Spontaneous
  Country: US (occurrence: US)
  Receive Date: 20130115
  Receipt Date: 20130115
  Transmission Date: 20140127
  Serious: Yes (Other)
  Sender: FDA-Public Use
  Company Number: US-SANOFI-AVENTIS-2013SA001156

PATIENT
  Sex: Female

DRUGS (1)
  1. AUBAGIO [Suspect]
     Route: 048
     Dates: end: 20121222

REACTIONS (4)
  - Multiple sclerosis [Unknown]
  - Clumsiness [Unknown]
  - Gait disturbance [Unknown]
  - Drug ineffective [Unknown]
